FAERS Safety Report 25335113 (Version 1)
Quarter: 2025Q2

REPORT INFORMATION
  Report Type: Report from Study
  Country: US (occurrence: US)
  Receive Date: 20250520
  Receipt Date: 20250520
  Transmission Date: 20250716
  Serious: Yes (Hospitalization, Other)
  Sender: ABBVIE
  Company Number: US-ABBVIE-6268767

PATIENT
  Age: 66 Year
  Sex: Female
  Weight: 99.79 kg

DRUGS (2)
  1. HUMIRA [Suspect]
     Active Substance: ADALIMUMAB
     Indication: Crohn^s disease
     Route: 058
     Dates: end: 2023
  2. HUMIRA [Suspect]
     Active Substance: ADALIMUMAB
     Indication: Rheumatoid arthritis

REACTIONS (10)
  - Haemorrhage [Recovered/Resolved]
  - Femur fracture [Recovered/Resolved]
  - Cervix carcinoma [Recovering/Resolving]
  - Brain fog [Recovering/Resolving]
  - Crohn^s disease [Not Recovered/Not Resolved]
  - Papilloma viral infection [Recovered/Resolved]
  - Lower limb fracture [Recovered/Resolved]
  - Pain [Not Recovered/Not Resolved]
  - Fall [Recovered/Resolved]
  - Cervix carcinoma stage II [Recovered/Resolved]

NARRATIVE: CASE EVENT DATE: 20231001
